FAERS Safety Report 11839440 (Version 1)
Quarter: 2015Q4

REPORT INFORMATION
  Report Type: Spontaneous
  Country: US (occurrence: US)
  Receive Date: 20151216
  Receipt Date: 20151216
  Transmission Date: 20160305
  Serious: Yes (Other)
  Sender: FDA-Public Use
  Company Number: US-ASTELLAS-2015US046937

PATIENT
  Age: 51 Year
  Sex: Female

DRUGS (6)
  1. FLUDARABINE [Concomitant]
     Active Substance: FLUDARABINE PHOSPHATE
     Dosage: 160 MG/M2, UNKNOWN FREQ. (DURING THIRD REDUCED INTENSITY CONDITIONING)
     Route: 065
  2. MELPHALAN [Concomitant]
     Active Substance: MELPHALAN
     Dosage: 75 MG/M2, UNKNOWN FREQ. (DURING THIRD REDUCED INTENSITY CONDITIONING)
     Route: 065
  3. FLUDARABINE [Concomitant]
     Active Substance: FLUDARABINE PHOSPHATE
     Indication: STEM CELL TRANSPLANT
     Dosage: 125 MG/M2, UNKNOWN FREQ. (DURING FIRST AND SECOND REDUCED INTENSITY CONDITIONING)
     Route: 065
  4. MELPHALAN [Concomitant]
     Active Substance: MELPHALAN
     Indication: STEM CELL TRANSPLANT
     Dosage: 140 MG/M2, UNKNOWN FREQ. (DURING FIRST REDUCED INTENSITY CONDITIONING)
     Route: 065
  5. TACROLIMUS. [Suspect]
     Active Substance: TACROLIMUS
     Indication: PROPHYLAXIS AGAINST GRAFT VERSUS HOST DISEASE
     Dosage: UNK UNK, UNKNOWN FREQ.
     Route: 065
  6. ANTITHYMOCYTE IMMUNOGLOBULIN [Concomitant]
     Active Substance: THYMOCYTE IMMUNE GLOBULIN NOS
     Indication: STEM CELL TRANSPLANT
     Dosage: 40 MG/KG, UNKNOWN FREQ. (DURING SECOND REDUCED INTENSITY CONDITIONING)
     Route: 065

REACTIONS (8)
  - Transplant failure [Unknown]
  - Serositis [Unknown]
  - Off label use [Unknown]
  - Graft versus host disease in eye [Unknown]
  - Acute graft versus host disease [Unknown]
  - Pancytopenia [Unknown]
  - Neutrophil count decreased [Not Recovered/Not Resolved]
  - Fatigue [Unknown]
